FAERS Safety Report 9804964 (Version 1)
Quarter: 2014Q1

REPORT INFORMATION
  Report Type: Spontaneous
  Country: US (occurrence: US)
  Receive Date: 20140109
  Receipt Date: 20140109
  Transmission Date: 20141002
  Serious: Yes (Other)
  Sender: FDA-Public Use
  Company Number: US-AMGEN-USASP2014000717

PATIENT
  Age: 73 Year
  Sex: Male
  Weight: 58.96 kg

DRUGS (8)
  1. ENBREL [Suspect]
     Indication: PRODUCT USED FOR UNKNOWN INDICATION
     Dosage: 50 MG, QWK
     Route: 058
  2. ZYRTEC [Concomitant]
     Dosage: 10 MG, UNK
  3. VERAMYST [Concomitant]
     Dosage: 27.5 MUG, UNK
  4. TIMOLOL MALEATE [Concomitant]
     Dosage: 10 MG, UNK
  5. MONTELUKAST [Concomitant]
     Dosage: 10 MG, UNK
  6. LUNESTA [Concomitant]
     Dosage: 1 MG, UNK
  7. DEXILANT [Concomitant]
     Dosage: 30 MG, UNK
  8. HYDROCODONE W/HOMATROPINE [Concomitant]
     Dosage: UNK

REACTIONS (1)
  - Skin cancer [Unknown]
